FAERS Safety Report 8400666-5 (Version None)
Quarter: 2012Q2

REPORT INFORMATION
  Report Type: 
  Country: None (occurrence: None)
  Receive Date: 20120531
  Receipt Date: 20120525
  Transmission Date: 20120825
  Serious: No
  Sender: FDA-Public Use
  Company Number: US-PFIZER INC-2012088235

PATIENT
  Sex: Female

DRUGS (3)
  1. GLUCOTROL [Suspect]
     Dosage: UNK
  2. CALAN [Suspect]
     Dosage: UNK
  3. ACCUPRIL [Suspect]
     Dosage: UNK

REACTIONS (4)
  - PAIN IN EXTREMITY [None]
  - PAIN [None]
  - FEELING ABNORMAL [None]
  - HEADACHE [None]
